FAERS Safety Report 25836845 (Version 1)
Quarter: 2025Q3

REPORT INFORMATION
  Report Type: Spontaneous
  Country: EU (occurrence: EU)
  Receive Date: 20250923
  Receipt Date: 20250923
  Transmission Date: 20251020
  Serious: Yes (Other)
  Sender: PFIZER
  Company Number: None

PATIENT
  Age: 43 Year
  Sex: Female

DRUGS (4)
  1. TRAZIMERA [Suspect]
     Active Substance: TRASTUZUMAB-QYYP
     Indication: Breast cancer metastatic
     Route: 042
     Dates: start: 2021
  2. TRAZIMERA [Suspect]
     Active Substance: TRASTUZUMAB-QYYP
     Indication: HER2 positive breast cancer
  3. TRASTUZUMAB DERUXTECAN [Concomitant]
     Active Substance: TRASTUZUMAB DERUXTECAN
     Indication: Breast cancer metastatic
     Dates: start: 2021
  4. TRASTUZUMAB DERUXTECAN [Concomitant]
     Active Substance: TRASTUZUMAB DERUXTECAN
     Indication: HER2 positive breast cancer

REACTIONS (3)
  - Hepatic cirrhosis [Not Recovered/Not Resolved]
  - Portal hypertension [Not Recovered/Not Resolved]
  - Focal nodular hyperplasia [Not Recovered/Not Resolved]

NARRATIVE: CASE EVENT DATE: 20250701
